FAERS Safety Report 4627009-7 (Version None)
Quarter: 2005Q1

REPORT INFORMATION
  Report Type: 
  Country: None (occurrence: None)
  Receive Date: 20050331
  Receipt Date: 20050318
  Transmission Date: 20050727
  Serious: Yes (Hospitalization)
  Sender: FDA-Public Use
  Company Number: 2005UW04739

PATIENT

DRUGS (1)
  1. DIPRIVAN [Suspect]

REACTIONS (1)
  - PROPOFOL INFUSION SYNDROME [None]
